FAERS Safety Report 11281991 (Version 2)
Quarter: 2015Q3

REPORT INFORMATION
  Report Type: Report from Study
  Country: US (occurrence: US)
  Receive Date: 20150718
  Receipt Date: 20150924
  Transmission Date: 20151125
  Serious: No
  Sender: FDA-Public Use
  Company Number: PHEH2015US013581

PATIENT
  Sex: Female

DRUGS (4)
  1. EXTAVIA [Suspect]
     Active Substance: INTERFERON BETA-1B
     Dosage: 1 ML (0.25 MG) QOD (WEEKS 7+)
     Route: 058
  2. EXTAVIA [Suspect]
     Active Substance: INTERFERON BETA-1B
     Indication: MULTIPLE SCLEROSIS
     Dosage: 0.25 ML (0.0625 MG) QOD (WEEKS 1-2)
     Route: 058
     Dates: start: 20150709
  3. EXTAVIA [Suspect]
     Active Substance: INTERFERON BETA-1B
     Dosage: 0.5 ML (0.125 MG) QOD(WEEKS 3-4)
     Route: 058
  4. EXTAVIA [Suspect]
     Active Substance: INTERFERON BETA-1B
     Dosage: 0.75 ML (0.1875MG) QOD(WEEKS 4-5)
     Route: 058

REACTIONS (5)
  - Strabismus [Unknown]
  - Headache [Recovered/Resolved]
  - Asthenia [Unknown]
  - Injection site mass [Recovered/Resolved]
  - Nasopharyngitis [Unknown]
